FAERS Safety Report 19141039 (Version 1)
Quarter: 2021Q2

REPORT INFORMATION
  Report Type: Spontaneous
  Country: IT (occurrence: IT)
  Receive Date: 20210415
  Receipt Date: 20210415
  Transmission Date: 20210717
  Serious: Yes (Hospitalization)
  Sender: FDA-Public Use
  Company Number: NVSC2021IT079467

PATIENT
  Age: 32 Year
  Sex: Female

DRUGS (1)
  1. TEGRETOL [Suspect]
     Active Substance: CARBAMAZEPINE
     Indication: PETIT MAL EPILEPSY
     Dosage: 200 MG, QD
     Route: 048
     Dates: start: 20210118, end: 20210222

REACTIONS (10)
  - Erythema multiforme [Recovered/Resolved]
  - Face oedema [Recovered/Resolved]
  - Erythema [Recovered/Resolved]
  - Hyperpyrexia [Recovered/Resolved]
  - Localised oedema [Recovered/Resolved]
  - Hepatic enzyme increased [Recovered/Resolved]
  - Eosinophil count increased [Recovered/Resolved]
  - Polymerase chain reaction [Recovered/Resolved]
  - Drug reaction with eosinophilia and systemic symptoms [Recovered/Resolved]
  - Lymphadenopathy [Recovered/Resolved]

NARRATIVE: CASE EVENT DATE: 20210221
